FAERS Safety Report 9372795 (Version 1)
Quarter: 2013Q2

REPORT INFORMATION
  Report Type: Report from Study
  Country: US (occurrence: US)
  Receive Date: 20130627
  Receipt Date: 20130627
  Transmission Date: 20140414
  Serious: Yes (Death)
  Sender: FDA-Public Use
  Company Number: US-MYLANLABS-2013S1008993

PATIENT
  Age: 59 Year
  Sex: Female
  Weight: 81.65 kg

DRUGS (9)
  1. CLOZAPINE TABLETS [Suspect]
     Route: 048
     Dates: start: 2012, end: 2013
  2. CLOZAPINE TABLETS [Suspect]
     Route: 048
     Dates: start: 2012, end: 2013
  3. SEROQUEL [Concomitant]
  4. SEROQUEL [Concomitant]
  5. LAMICTAL [Concomitant]
  6. CYMBALTA [Concomitant]
  7. ATIVAN [Concomitant]
  8. ARICEPT [Concomitant]
  9. COGENTIN [Concomitant]

REACTIONS (1)
  - Death [Fatal]
